FAERS Safety Report 11528006 (Version 1)
Quarter: 2015Q3

REPORT INFORMATION
  Report Type: Spontaneous
  Country: US (occurrence: US)
  Receive Date: 20150921
  Receipt Date: 20150921
  Transmission Date: 20151125
  Serious: No
  Sender: FDA-Public Use
  Company Number: US-AMGEN-USASP2015094155

PATIENT
  Age: 62 Year
  Sex: Female

DRUGS (2)
  1. ENBREL [Suspect]
     Active Substance: ETANERCEPT
     Indication: RHEUMATOID ARTHRITIS
     Dosage: 50 MG, QWK
     Route: 065
  2. METHOTREXATE (METHOTREXATE SODIUM) [Concomitant]
     Active Substance: METHOTREXATE SODIUM
     Indication: RHEUMATOID ARTHRITIS
     Dosage: UNK

REACTIONS (9)
  - Skin haemorrhage [Unknown]
  - Secretion discharge [Unknown]
  - Headache [Not Recovered/Not Resolved]
  - Herpes zoster [Unknown]
  - Urticaria [Unknown]
  - Pain of skin [Unknown]
  - Pruritus [Unknown]
  - Skin irritation [Unknown]
  - Papule [Unknown]

NARRATIVE: CASE EVENT DATE: 20150908
